FAERS Safety Report 4954150-1 (Version None)
Quarter: 2006Q1

REPORT INFORMATION
  Report Type: 
  Country: None (occurrence: None)
  Receive Date: 20060327
  Receipt Date: 20060127
  Transmission Date: 20060701
  Serious: Yes (Hospitalization)
  Sender: FDA-Public Use
  Company Number: DE-AVENTIS-200610829GDDC

PATIENT
  Sex: Female
  Weight: 2.6 kg

DRUGS (2)
  1. MINIRIN [Suspect]
     Indication: ANTIDIURETIC HORMONE ABNORMALITY
     Dosage: DOSE: UNK
     Route: 064
     Dates: end: 20041018
  2. MAGNESIUM [Concomitant]
     Dosage: DOSE: UNK
     Route: 064
     Dates: end: 20041018

REACTIONS (5)
  - CAESAREAN SECTION [None]
  - CEREBRAL INFARCTION [None]
  - CONVULSION NEONATAL [None]
  - DRUG EXPOSURE DURING PREGNANCY [None]
  - NEONATAL ASPHYXIA [None]
